FAERS Safety Report 7915434 (Version 4)
Quarter: 2013Q2

REPORT INFORMATION
  Report Type: Spontaneous
  Country: US (occurrence: US)
  Receive Date: 20110426
  Receipt Date: 20130507
  Transmission Date: 20140414
  Serious: Yes (Hospitalization)
  Sender: FDA-Public Use
  Company Number: US-BAYER-201028801NA

PATIENT
  Age: 26 Year
  Sex: Female
  Weight: 69.39 kg

DRUGS (7)
  1. YASMIN [Suspect]
     Indication: CONTRACEPTION
     Dosage: UNK
     Dates: start: 200701, end: 200708
  2. YASMIN [Suspect]
     Indication: CONTRACEPTION
     Dosage: UNK
     Dates: start: 200801, end: 200803
  3. ANTIBIOTICS [Concomitant]
     Dosage: UNK
     Dates: start: 200412, end: 200802
  4. NEXIUM [Concomitant]
     Indication: DYSPEPSIA
     Dosage: UNK
     Dates: start: 2004, end: 2009
  5. ADVIL [IBUPROFEN] [Concomitant]
     Indication: PAIN
     Dosage: UNK UNK, PRN
  6. TYLENOL [Concomitant]
     Indication: PAIN
     Dosage: UNK UNK, PRN
  7. AZITHROMYCIN [Concomitant]
     Dosage: 250 MG, UNK
     Dates: start: 20080217

REACTIONS (2)
  - Pulmonary embolism [None]
  - Local swelling [None]
